FAERS Safety Report 17049210 (Version 1)
Quarter: 2019Q4

REPORT INFORMATION
  Report Type: Spontaneous
  Country: US (occurrence: US)
  Receive Date: 20191021
  Receipt Date: 20191021
  Transmission Date: 20200122
  Serious: No
  Sender: FDA-Public Use
  Company Number: None

PATIENT
  Age: 67 Year
  Sex: Female
  Weight: 72.57 kg

DRUGS (1)
  1. NEW YOU CB2 FULL-SPECTRUM CANNA-ACTIVE OIL [Suspect]
     Active Substance: CANNABIDIOL\HERBALS
     Route: 048

REACTIONS (3)
  - Symptom recurrence [None]
  - Product quality issue [None]
  - Product formulation issue [None]
